FAERS Safety Report 20546388 (Version 1)
Quarter: 2022Q1

REPORT INFORMATION
  Report Type: Spontaneous
  Country: US (occurrence: US)
  Receive Date: 20220303
  Receipt Date: 20220303
  Transmission Date: 20220424
  Serious: Yes (Other)
  Sender: FDA-Public Use
  Company Number: US-MYLANLABS-2022M1016625

PATIENT
  Age: 36 Year
  Sex: Female

DRUGS (8)
  1. PREDNISONE [Suspect]
     Active Substance: PREDNISONE
     Indication: Antiphospholipid syndrome
     Dosage: UNK
     Route: 065
  2. PREDNISONE [Suspect]
     Active Substance: PREDNISONE
     Indication: Evans syndrome
  3. HUMAN IMMUNOGLOBULIN G [Suspect]
     Active Substance: HUMAN IMMUNOGLOBULIN G
     Indication: Antiphospholipid syndrome
     Dosage: 6 DOSES
     Route: 042
  4. HUMAN IMMUNOGLOBULIN G [Suspect]
     Active Substance: HUMAN IMMUNOGLOBULIN G
     Indication: Evans syndrome
  5. ROMIPLOSTIM [Suspect]
     Active Substance: ROMIPLOSTIM
     Indication: Antiphospholipid syndrome
     Dosage: UNK
     Route: 065
  6. ROMIPLOSTIM [Suspect]
     Active Substance: ROMIPLOSTIM
     Indication: Evans syndrome
  7. RITUXIMAB [Suspect]
     Active Substance: RITUXIMAB
     Indication: Antiphospholipid syndrome
     Dosage: UNK WEEKLY
     Route: 065
  8. RITUXIMAB [Suspect]
     Active Substance: RITUXIMAB
     Indication: Evans syndrome

REACTIONS (1)
  - Therapy non-responder [Unknown]
